FAERS Safety Report 20113945 (Version 4)
Quarter: 2021Q4

REPORT INFORMATION
  Report Type: Spontaneous
  Country: GB (occurrence: GB)
  Receive Date: 20211125
  Receipt Date: 20211227
  Transmission Date: 20220303
  Serious: Yes (Congenital Anomaly)
  Sender: FDA-Public Use
  Company Number: GB-002147023-NVSC2021GB259909

PATIENT
  Sex: Female

DRUGS (2)
  1. OMALIZUMAB [Suspect]
     Active Substance: OMALIZUMAB
     Indication: Product used for unknown indication
     Dosage: MATERNAL DOSE: UNKNOWN
     Route: 064
  2. OMALIZUMAB [Suspect]
     Active Substance: OMALIZUMAB
     Dosage: MATERNAL DOSE: UNKNOWN
     Route: 064

REACTIONS (8)
  - Auditory neuropathy spectrum disorder [Unknown]
  - Head deformity [Unknown]
  - Strabismus [Unknown]
  - Facial asymmetry [Unknown]
  - Hyperreflexia [Unknown]
  - Congenital neuropathy [Unknown]
  - Hypoacusis [Unknown]
  - Foetal exposure during pregnancy [Unknown]
